FAERS Safety Report 10445726 (Version 1)
Quarter: 2014Q3

REPORT INFORMATION
  Report Type: Spontaneous
  Country: PL (occurrence: PL)
  Receive Date: 20140910
  Receipt Date: 20140910
  Transmission Date: 20150326
  Serious: Yes (Life-Threatening)
  Sender: FDA-Public Use
  Company Number: GXKR2014PL003397

PATIENT
  Age: 70 Year
  Sex: Male

DRUGS (1)
  1. VINORELBINE [Suspect]
     Active Substance: VINORELBINE\VINORELBINE TARTRATE
     Indication: LUNG CARCINOMA CELL TYPE UNSPECIFIED STAGE 0
     Dosage: 50 MG DAILY
     Route: 042
     Dates: start: 20140403, end: 20140403

REACTIONS (4)
  - Neutropenia [Unknown]
  - Chills [Unknown]
  - Pyrexia [Unknown]
  - Leukopenia [Unknown]

NARRATIVE: CASE EVENT DATE: 20140409
